FAERS Safety Report 9175365 (Version 1)
Quarter: 2013Q1

REPORT INFORMATION
  Report Type: Spontaneous
  Country: US (occurrence: US)
  Receive Date: 20130320
  Receipt Date: 20130320
  Transmission Date: 20140127
  Serious: No
  Sender: FDA-Public Use
  Company Number: US-ASTRAZENECA-2013SE14079

PATIENT
  Age: 45 Year
  Sex: Male
  Weight: 101.2 kg

DRUGS (7)
  1. METOPROLOL TARTRATE [Suspect]
     Route: 065
  2. QUETIAPINE FUMARATE [Suspect]
     Indication: BIPOLAR I DISORDER
     Route: 048
     Dates: start: 201206
  3. QUETIAPINE FUMARATE [Suspect]
     Indication: BIPOLAR I DISORDER
     Route: 048
  4. LOVASTATIN [Concomitant]
     Indication: BLOOD CHOLESTEROL ABNORMAL
  5. FENOFIBRATE [Concomitant]
     Indication: HYPERTENSION
     Dates: start: 2012
  6. CLONOPIN [Concomitant]
     Indication: GENERALISED ANXIETY DISORDER
  7. ADDERAL [Concomitant]
     Indication: ATTENTION DEFICIT/HYPERACTIVITY DISORDER
     Dosage: GENERIC

REACTIONS (8)
  - Hypertension [Unknown]
  - Feeling abnormal [Unknown]
  - Feeling abnormal [Unknown]
  - Feeling abnormal [Unknown]
  - Blood triglycerides increased [Unknown]
  - Blood cholesterol increased [Unknown]
  - Hypersomnia [Unknown]
  - Weight increased [Unknown]
